FAERS Safety Report 5849524-0 (Version None)
Quarter: 2008Q3

REPORT INFORMATION
  Report Type: 
  Country: None (occurrence: None)
  Receive Date: 20080819
  Receipt Date: 20080808
  Transmission Date: 20090109
  Serious: Yes (Hospitalization)
  Sender: FDA-Public Use
  Company Number: B0529306A

PATIENT
  Age: 77 Year
  Sex: Female

DRUGS (6)
  1. ZOPHREN [Suspect]
     Route: 065
     Dates: start: 20080522, end: 20080606
  2. FOTEMUSTINE [Suspect]
     Route: 065
     Dates: start: 20080522, end: 20080606
  3. FURADANTIN [Suspect]
     Indication: DRUG USE FOR UNKNOWN INDICATION
     Dosage: 6TAB CUMULATIVE DOSE
     Route: 048
     Dates: start: 20080603, end: 20080605
  4. PROPOXYPHENE HCL AND ACETAMINOPHEN [Concomitant]
     Indication: DRUG USE FOR UNKNOWN INDICATION
     Route: 065
     Dates: start: 20080522
  5. HYDROCORTISONE [Concomitant]
     Route: 065
  6. MONURIL [Concomitant]
     Route: 065
     Dates: start: 20080601

REACTIONS (1)
  - JAUNDICE [None]
